FAERS Safety Report 14643910 (Version 3)
Quarter: 2018Q4

REPORT INFORMATION
  Report Type: Report from Study
  Country: None (occurrence: DE)
  Receive Date: 20180315
  Receipt Date: 20181017
  Transmission Date: 20190204
  Serious: Yes (Other)
  Sender: FDA-Public Use
  Company Number: DE-BAUSCH-BL-2018-006502

PATIENT
  Age: 65 Year
  Sex: Male

DRUGS (5)
  1. SIMVASTATIN. [Suspect]
     Active Substance: SIMVASTATIN
     Indication: PRODUCT USED FOR UNKNOWN INDICATION
     Route: 048
  2. IRBESARTAN. [Suspect]
     Active Substance: IRBESARTAN
     Indication: PRODUCT USED FOR UNKNOWN INDICATION
     Route: 065
  3. PREDNISOLONE. [Suspect]
     Active Substance: PREDNISOLONE
     Indication: PRODUCT USED FOR UNKNOWN INDICATION
     Route: 048
  4. VALSARTAN. [Suspect]
     Active Substance: VALSARTAN
     Indication: PRODUCT USED FOR UNKNOWN INDICATION
     Route: 065
  5. METHOTREXATE. [Suspect]
     Active Substance: METHOTREXATE
     Indication: PRODUCT USED FOR UNKNOWN INDICATION
     Route: 048

REACTIONS (3)
  - Actinic keratosis [Unknown]
  - Photosensitivity reaction [Unknown]
  - Basal cell carcinoma [Unknown]
